FAERS Safety Report 23755998 (Version 2)
Quarter: 2024Q2

REPORT INFORMATION
  Report Type: Report from Study
  Country: US (occurrence: US)
  Receive Date: 20240418
  Receipt Date: 20240423
  Transmission Date: 20240716
  Serious: Yes (Hospitalization, Other)
  Sender: FDA-Public Use
  Company Number: US-UCBSA-2024018115

PATIENT
  Age: 44 Year
  Sex: Female

DRUGS (1)
  1. CERTOLIZUMAB PEGOL [Suspect]
     Active Substance: CERTOLIZUMAB PEGOL
     Indication: Rheumatoid arthritis
     Dosage: 400 MILLIGRAM, EV 4 WEEKS
     Route: 058
     Dates: start: 20230406

REACTIONS (3)
  - Umbilical hernia [Not Recovered/Not Resolved]
  - Umbilical hernia repair [Not Recovered/Not Resolved]
  - Seroma [Not Recovered/Not Resolved]

NARRATIVE: CASE EVENT DATE: 20240329
